FAERS Safety Report 9523301 (Version 1)
Quarter: 2013Q1

REPORT INFORMATION
  Report Type: Spontaneous
  Country: US (occurrence: None)
  Receive Date: 20130305
  Receipt Date: 20130305
  Transmission Date: 20140127
  Serious: Yes (Hospitalization, Other)
  Sender: FDA-Public Use
  Company Number: 163-21880-12072401

PATIENT
  Age: 84 Year
  Sex: Male
  Weight: 94.8 kg

DRUGS (1)
  1. REVLIMID (LENALIDOMIDE) (CAPSULES) [Suspect]
     Indication: PLASMA CELL MYELOMA
     Dosage: 15 MG, 1 IN 48 HRS, PO
     Route: 048
     Dates: start: 20120518

REACTIONS (2)
  - Arrhythmia [None]
  - Platelet count decreased [None]
